FAERS Safety Report 23430757 (Version 3)
Quarter: 2024Q1

REPORT INFORMATION
  Report Type: Spontaneous
  Country: US (occurrence: US)
  Receive Date: 20240123
  Receipt Date: 20240305
  Transmission Date: 20240409
  Serious: No
  Sender: FDA-Public Use
  Company Number: US-BIOGEN-2024BI01246636

PATIENT
  Age: 44 Year
  Sex: Male

DRUGS (1)
  1. SKYCLARYS [Suspect]
     Active Substance: OMAVELOXOLONE
     Indication: Friedreich^s ataxia
     Dosage: 150 MG PO ONCE DAILY
     Route: 050
     Dates: start: 20231201

REACTIONS (4)
  - Pain [Unknown]
  - Product dose omission issue [Unknown]
  - Urinary tract infection [Unknown]
  - Eating disorder [Unknown]

NARRATIVE: CASE EVENT DATE: 20231201
